FAERS Safety Report 5187859-8 (Version None)
Quarter: 2006Q4

REPORT INFORMATION
  Report Type: 
  Country: None (occurrence: None)
  Receive Date: 20061221
  Receipt Date: 20060922
  Transmission Date: 20070319
  Serious: No
  Sender: FDA-Public Use
  Company Number: US-GLAXOSMITHKLINE-A0621516A

PATIENT
  Sex: Male

DRUGS (7)
  1. AVANDARYL [Suspect]
     Dosage: 1TAB PER DAY
     Route: 048
     Dates: start: 20060301
  2. AVAPRO [Concomitant]
  3. ASCORBIC ACID [Concomitant]
  4. VITAMIN E [Concomitant]
  5. LUNESTA [Concomitant]
  6. VALIUM [Concomitant]
  7. ASPIRIN [Concomitant]

REACTIONS (1)
  - WEIGHT INCREASED [None]
